FAERS Safety Report 10646754 (Version 1)
Quarter: 2014Q4

REPORT INFORMATION
  Report Type: Spontaneous
  Country: US (occurrence: US)
  Receive Date: 20141211
  Receipt Date: 20141211
  Transmission Date: 20150529
  Serious: No
  Sender: FDA-Public Use
  Company Number: US-PFIZER INC-2014337270

PATIENT
  Age: 50 Year
  Sex: Male

DRUGS (13)
  1. TEGRETOL [Concomitant]
     Active Substance: CARBAMAZEPINE
     Dosage: 200 MG (TAKE 1.5 TABLETS,300 MG TOTAL), TWO TIMES DAILY
     Route: 048
     Dates: start: 20141117
  2. ULTRAM [Concomitant]
     Active Substance: TRAMADOL HYDROCHLORIDE
     Indication: PAIN
     Dosage: 50 MG, EVERY 8 HOURS AS NEEDED
     Route: 048
     Dates: start: 20140721
  3. ELAVIL [Concomitant]
     Active Substance: AMITRIPTYLINE HYDROCHLORIDE
     Dosage: 2 TABLETS (200 MG TOTAL) NIGHTLY
     Route: 048
     Dates: start: 20141029
  4. LYRICA [Suspect]
     Active Substance: PREGABALIN
     Dosage: 225 MG, 2X/DAY
     Route: 048
     Dates: start: 20140411
  5. NEXIUM [Concomitant]
     Active Substance: ESOMEPRAZOLE MAGNESIUM
     Dosage: 40 MG, DAILY
     Route: 048
     Dates: start: 20121108
  6. INDERAL [Concomitant]
     Active Substance: PROPRANOLOL HYDROCHLORIDE
     Dosage: 80 MG, 2X/DAY
     Dates: start: 20140814
  7. CLOBETASOL 0.05% [Concomitant]
     Indication: PSORIASIS
     Dosage: 0.05 % 2 (TWO) TIMES DAILY
     Route: 061
     Dates: start: 20140115
  8. VALIUM [Concomitant]
     Active Substance: DIAZEPAM
     Indication: ANXIETY
     Dosage: 10 MG, EVERY 8 HOURS, AS NEEDED
     Route: 048
     Dates: start: 20141117
  9. ZONEGRAN [Concomitant]
     Active Substance: ZONISAMIDE
     Dosage: 200 MG, DAILY (AT BEDTIME)
     Route: 048
     Dates: start: 20140611
  10. FLOVENT HFA [Concomitant]
     Active Substance: FLUTICASONE PROPIONATE
     Dosage: 220 ?G, (INHALE 2 PUFFS, 2 TIMES DAILY)
     Dates: start: 20141119
  11. LIORESAL [Concomitant]
     Active Substance: BACLOFEN
     Indication: HEADACHE
     Dosage: 20 MG, 4 TIMES EVERYDAY
     Route: 048
     Dates: start: 20141121
  12. DOVONEX [Concomitant]
     Active Substance: CALCIPOTRIENE
     Dosage: 0.005% ( 2 TIMES DAILY)
     Route: 061
     Dates: start: 20140115
  13. ZANAFLEX [Concomitant]
     Active Substance: TIZANIDINE HYDROCHLORIDE
     Dosage: ONE TABLET BY MOUTH EVERY MORNING AND 2 TABLETS BY MOUTH EVERY EVENING AS NEEDED
     Route: 048
     Dates: start: 20141120

REACTIONS (1)
  - Road traffic accident [Unknown]

NARRATIVE: CASE EVENT DATE: 20141016
